FAERS Safety Report 8554237-0 (Version None)
Quarter: 2012Q3

REPORT INFORMATION
  Report Type: 
  Country: None (occurrence: None)
  Receive Date: 20120731
  Receipt Date: 20120720
  Transmission Date: 20120928
  Serious: Yes (Hospitalization, Other)
  Sender: FDA-Public Use
  Company Number: DE-CELGENEUS-062-21880-12072484

PATIENT
  Age: 56 Year
  Sex: Female
  Weight: 65 kg

DRUGS (3)
  1. REVLIMID [Suspect]
     Indication: MULTIPLE MYELOMA
     Route: 048
     Dates: start: 20091013, end: 20100105
  2. REVLIMID [Suspect]
     Route: 048
     Dates: start: 20100106, end: 20101123
  3. REVLIMID [Suspect]
     Route: 048
     Dates: start: 20101208, end: 20110919

REACTIONS (2)
  - UTERINE POLYP [None]
  - ENDOMETRIAL CANCER [None]
